FAERS Safety Report 4803322-5 (Version None)
Quarter: 2005Q4

REPORT INFORMATION
  Report Type: 
  Country: None (occurrence: None)
  Receive Date: 20051013
  Receipt Date: 20051003
  Transmission Date: 20060501
  Serious: Yes (Hospitalization)
  Sender: FDA-Public Use
  Company Number: 143313USA

PATIENT
  Age: 84 Year
  Sex: Male
  Weight: 61.4624 kg

DRUGS (9)
  1. CARBOPLATIN [Suspect]
     Indication: BLADDER CANCER
     Dates: start: 20050407, end: 20050906
  2. LEVOTHYROXINE [Concomitant]
  3. LASIX [Concomitant]
  4. SPIRONOLACTONE [Concomitant]
  5. MAGOX [Concomitant]
  6. METOPROLOL [Concomitant]
  7. NEUPOGEN [Concomitant]
  8. TAXOL [Concomitant]
  9. ARANESP [Concomitant]

REACTIONS (6)
  - HYPOXIA [None]
  - LOSS OF CONSCIOUSNESS [None]
  - MITRAL VALVE INCOMPETENCE [None]
  - MYOCARDIAL INFARCTION [None]
  - PULMONARY HYPERTENSION [None]
  - TRICUSPID VALVE INCOMPETENCE [None]
